FAERS Safety Report 9852690 (Version 1)
Quarter: 2014Q1

REPORT INFORMATION
  Report Type: Spontaneous
  Country: US (occurrence: None)
  Receive Date: 20140128
  Receipt Date: 20140128
  Transmission Date: 20141002
  Serious: No
  Sender: FDA-Public Use
  Company Number: None

PATIENT
  Age: 54 Year
  Sex: Female
  Weight: 68.04 kg

DRUGS (1)
  1. ZYCLARA [Suspect]
     Indication: PRECANCEROUS SKIN LESION
     Dosage: APPLY CREAM ONCE DAILY APPLIED TO SURFACE, USUALLY THE SKIN
     Dates: start: 20140106, end: 20140120

REACTIONS (6)
  - Oral pain [None]
  - Lip blister [None]
  - Neck pain [None]
  - Oropharyngeal pain [None]
  - Insomnia [None]
  - Aphagia [None]
